FAERS Safety Report 8001720-2 (Version None)
Quarter: 2011Q4

REPORT INFORMATION
  Report Type: 
  Country: None (occurrence: None)
  Receive Date: 20111222
  Receipt Date: 20111220
  Transmission Date: 20120403
  Serious: Yes (Other)
  Sender: FDA-Public Use
  Company Number: US-JNJFOC-20111208473

PATIENT
  Age: 69 Year
  Sex: Female

DRUGS (1)
  1. NICOTINE [Suspect]
     Indication: HYPERMETABOLISM
     Dosage: ONLY FOUR PIECES PER DAY, EACH PIECE FOR 1.5 HOURS, SINCE APPROXIMATELY TWO YEARS
     Route: 048
     Dates: start: 19990101

REACTIONS (3)
  - DRUG ADMINISTRATION ERROR [None]
  - INTENTIONAL DRUG MISUSE [None]
  - NICOTINE DEPENDENCE [None]
